FAERS Safety Report 16996638 (Version 3)
Quarter: 2020Q2

REPORT INFORMATION
  Report Type: Spontaneous
  Country: JP (occurrence: JP)
  Receive Date: 20191106
  Receipt Date: 20200618
  Transmission Date: 20200713
  Serious: Yes (Hospitalization, Other)
  Sender: FDA-Public Use
  Company Number: JP-TEVA-2019-JP-1133055

PATIENT
  Age: 50 Year
  Sex: Male

DRUGS (6)
  1. CYTARABINE. [Suspect]
     Active Substance: CYTARABINE
     Indication: MANTLE CELL LYMPHOMA
     Dosage: 1520 MILLIGRAM DAILY;
     Route: 041
     Dates: start: 20181107
  2. RITUXIMAB. [Suspect]
     Active Substance: RITUXIMAB
     Indication: MANTLE CELL LYMPHOMA
     Dosage: 375 MG/M2 DAILY;
     Route: 041
     Dates: start: 20181109
  3. BENDAMUSTINE HYDROCHLORIDE. [Suspect]
     Active Substance: BENDAMUSTINE HYDROCHLORIDE
     Indication: MANTLE CELL LYMPHOMA
     Dosage: 130 MG/M2 DAILY;
     Route: 041
     Dates: start: 20181107, end: 20181108
  4. BENDAMUSTINE HYDROCHLORIDE. [Suspect]
     Active Substance: BENDAMUSTINE HYDROCHLORIDE
     Dosage: 130 MG/M2 DAILY;
     Route: 041
     Dates: start: 20181208, end: 20181209
  5. CYTARABINE. [Suspect]
     Active Substance: CYTARABINE
     Dosage: 1520 MILLIGRAM DAILY;
     Route: 041
     Dates: start: 20181210
  6. RITUXIMAB. [Suspect]
     Active Substance: RITUXIMAB
     Dosage: 375 MG/M2 DAILY;
     Route: 041
     Dates: start: 20181210

REACTIONS (5)
  - Eosinophilic pustular folliculitis [Recovering/Resolving]
  - Dermatitis [Unknown]
  - BK virus infection [Recovering/Resolving]
  - Adenoviral haemorrhagic cystitis [Recovering/Resolving]
  - Cytomegalovirus enteritis [Recovering/Resolving]

NARRATIVE: CASE EVENT DATE: 20181220
